FAERS Safety Report 25120049 (Version 2)
Quarter: 2025Q3

REPORT INFORMATION
  Report Type: Spontaneous
  Country: JP (occurrence: JP)
  Receive Date: 20250325
  Receipt Date: 20250802
  Transmission Date: 20251021
  Serious: Yes (Other)
  Sender: ALEXION PHARMACEUTICALS
  Company Number: JP-ASTRAZENECA-250028334_063010_P_1

PATIENT
  Age: 72 Year
  Sex: Male
  Weight: 68 kg

DRUGS (17)
  1. DAPAGLIFLOZIN [Suspect]
     Active Substance: DAPAGLIFLOZIN
     Indication: Cardiac failure chronic
     Dosage: AFTER BREAKFAST
  2. DAPAGLIFLOZIN [Suspect]
     Active Substance: DAPAGLIFLOZIN
     Dosage: AFTER BREAKFAST
  3. ASPIRIN [Concomitant]
     Active Substance: ASPIRIN
     Dosage: AFTER BREAKFAST
  4. ASPIRIN [Concomitant]
     Active Substance: ASPIRIN
     Dosage: AFTER BREAKFAST
  5. CLOPIDOGREL BISULFATE [Concomitant]
     Active Substance: CLOPIDOGREL BISULFATE
     Dosage: AFTER BREAKFAST
  6. CLOPIDOGREL BISULFATE [Concomitant]
     Active Substance: CLOPIDOGREL BISULFATE
     Dosage: AFTER BREAKFAST
  7. ATORVASTATIN CALCIUM [Concomitant]
     Active Substance: ATORVASTATIN CALCIUM
     Dosage: AFTER BREAKFAST
  8. CARVEDILOL [Concomitant]
     Active Substance: CARVEDILOL
     Dosage: AFTER BREAKFAST
  9. CARVEDILOL [Concomitant]
     Active Substance: CARVEDILOL
     Dosage: AFTER BREAKFAST
  10. METFORMIN HYDROCHLORIDE [Concomitant]
     Active Substance: METFORMIN HYDROCHLORIDE
     Dosage: AFTER BREAKFAST AND EVENING MEAL
  11. METFORMIN HYDROCHLORIDE [Concomitant]
     Active Substance: METFORMIN HYDROCHLORIDE
     Dosage: AFTER BREAKFAST AND EVENING MEAL
  12. INSULIN NOS [Concomitant]
     Active Substance: INSULIN NOS
  13. SPIRONOLACTONE [Concomitant]
     Active Substance: SPIRONOLACTONE
     Indication: Cardiac failure
     Dosage: AFTER BREAKFAST
  14. SPIRONOLACTONE [Concomitant]
     Active Substance: SPIRONOLACTONE
     Dosage: AFTER BREAKFAST
  15. VALSARTAN [Concomitant]
     Active Substance: VALSARTAN
     Indication: Cardiac failure
     Dosage: AFTER BREAKFAST
  16. VALSARTAN [Concomitant]
     Active Substance: VALSARTAN
     Dosage: AFTER BREAKFAST
  17. ATORVASTATIN [Concomitant]
     Active Substance: ATORVASTATIN
     Dosage: AFTER BREAKFAST

REACTIONS (2)
  - Hyperkalaemia [Recovered/Resolved]
  - Dehydration [Recovered/Resolved]
